FAERS Safety Report 8920515 (Version 1)
Quarter: 2012Q4

REPORT INFORMATION
  Report Type: 
  Country: RU (occurrence: RU)
  Receive Date: 20121121
  Receipt Date: 20121121
  Transmission Date: 20130627
  Serious: Yes (Other)
  Sender: FDA-Public Use
  Company Number: RU-ASTRAZENECA-2012SE86012

PATIENT
  Sex: Female
  Weight: 64 kg

DRUGS (1)
  1. MARCAINE [Suspect]
     Indication: ANAESTHESIA
     Route: 037
     Dates: start: 20121112, end: 20121112

REACTIONS (3)
  - Procedural pain [Recovered/Resolved]
  - Drug effect decreased [Recovered/Resolved]
  - Maternal exposure during pregnancy [None]
